FAERS Safety Report 8221767-0 (Version None)
Quarter: 2012Q1

REPORT INFORMATION
  Report Type: 
  Country: None (occurrence: None)
  Receive Date: 20120320
  Receipt Date: 20120320
  Transmission Date: 20120608
  Serious: Yes (Life-Threatening, Hospitalization, Disabling)
  Sender: FDA-Public Use
  Company Number: None

PATIENT
  Age: 58 Year
  Sex: Male
  Weight: 83.914 kg

DRUGS (1)
  1. LEVOFLOXACIN [Suspect]
     Indication: INFECTION
     Dosage: I TABLET
     Dates: start: 20120316, end: 20120321

REACTIONS (1)
  - ANAPHYLACTIC SHOCK [None]
